FAERS Safety Report 10560080 (Version 1)
Quarter: 2014Q4

REPORT INFORMATION
  Report Type: Spontaneous
  Country: US (occurrence: None)
  Receive Date: 20141031
  Receipt Date: 20141031
  Transmission Date: 20150529
  Serious: Yes (Hospitalization, Disabling, Other)
  Sender: FDA-Public Use
  Company Number: None

PATIENT
  Age: 53 Year
  Sex: Male
  Weight: 97 kg

DRUGS (9)
  1. HYDROCHLOROTHIAZIDE. [Concomitant]
     Active Substance: HYDROCHLOROTHIAZIDE
  2. TRAMADOL [Concomitant]
     Active Substance: TRAMADOL
  3. FOLIC ACID. [Concomitant]
     Active Substance: FOLIC ACID
  4. ANAGRELIDE [Suspect]
     Active Substance: ANAGRELIDE
     Indication: ESSENTIAL THROMBOCYTHAEMIA
     Route: 048
  5. HYDROXYUREA. [Concomitant]
     Active Substance: HYDROXYUREA
  6. ASPIRIN. [Concomitant]
     Active Substance: ASPIRIN
  7. AMITRIPTYLINE [Concomitant]
     Active Substance: AMITRIPTYLINE
  8. ANAGRELIDE [Concomitant]
     Active Substance: ANAGRELIDE
  9. OMEPRAZOLE. [Concomitant]
     Active Substance: OMEPRAZOLE

REACTIONS (2)
  - Cardiac failure [None]
  - Cardiomyopathy [None]

NARRATIVE: CASE EVENT DATE: 20131004
